FAERS Safety Report 5857474-9 (Version None)
Quarter: 2008Q3

REPORT INFORMATION
  Report Type: 
  Country: None (occurrence: None)
  Receive Date: 20080826
  Receipt Date: 20080818
  Transmission Date: 20090109
  Serious: Yes (Other)
  Sender: FDA-Public Use
  Company Number: US-BAYER-200831304NA

PATIENT
  Age: 24 Year
  Sex: Female

DRUGS (1)
  1. MIRENA [Suspect]
     Indication: CONTRACEPTION
     Dates: start: 20080131, end: 20080618

REACTIONS (6)
  - ABDOMINAL PAIN UPPER [None]
  - IUCD COMPLICATION [None]
  - IUD MIGRATION [None]
  - METRORRHAGIA [None]
  - PROCEDURAL PAIN [None]
  - UTERINE RUPTURE [None]
